FAERS Safety Report 4893822-4 (Version None)
Quarter: 2006Q1

REPORT INFORMATION
  Report Type: 
  Country: None (occurrence: None)
  Receive Date: 20060127
  Receipt Date: 20051028
  Transmission Date: 20060701
  Serious: Yes (Hospitalization)
  Sender: FDA-Public Use
  Company Number: 2005SE06198

PATIENT
  Age: 27208 Day
  Sex: Male
  Weight: 71 kg

DRUGS (9)
  1. CANDESARTAN CILEXETIL [Suspect]
     Indication: HYPERTENSION
     Route: 048
     Dates: start: 20050914, end: 20050927
  2. CANDESARTAN CILEXETIL [Suspect]
     Route: 048
     Dates: start: 20050928, end: 20051014
  3. METOPROLOL [Concomitant]
     Indication: HYPERTENSION
     Route: 048
     Dates: start: 19970527
  4. AMARYL [Concomitant]
     Indication: DIABETES MELLITUS
     Route: 048
     Dates: start: 20000101
  5. PLAVIX [Concomitant]
     Indication: CORONARY ARTERY DISEASE
     Route: 048
     Dates: start: 20030723
  6. ACETYLSALICYLIC ACID [Concomitant]
     Indication: CORONARY ARTERY DISEASE
     Route: 048
     Dates: start: 19940101
  7. UNAT [Concomitant]
     Indication: CARDIAC FAILURE CHRONIC
     Route: 048
     Dates: start: 20010516
  8. ENALAPRIL [Concomitant]
     Indication: CARDIAC FAILURE CHRONIC
     Route: 048
     Dates: start: 20021206
  9. AQUAPHOR [Concomitant]
     Route: 048

REACTIONS (3)
  - CARDIAC FAILURE [None]
  - MYELODYSPLASTIC SYNDROME [None]
  - TACHYARRHYTHMIA [None]
